FAERS Safety Report 9012043 (Version 2)
Quarter: 2013Q1

REPORT INFORMATION
  Report Type: Spontaneous
  Country: BR (occurrence: None)
  Receive Date: 20121228
  Receipt Date: 20130128
  Transmission Date: 20140127
  Serious: Yes (Other)
  Sender: FDA-Public Use
  Company Number: 2012-004449

PATIENT
  Age: 56 Year
  Sex: Female
  Weight: 62 kg

DRUGS (2)
  1. ACTONEL (RISEDRONATE SODIUM) TABLET, 150MG [Suspect]
     Indication: OSTEOPOROSIS
     Route: 048
     Dates: start: 20121216, end: 20121216
  2. EUTHYROX (LEVOTHYROXINE SODIUM) [Concomitant]

REACTIONS (13)
  - Loss of consciousness [None]
  - Dizziness [None]
  - Visual impairment [None]
  - Road traffic accident [None]
  - Oesophagitis [None]
  - Pain [None]
  - Pyrexia [None]
  - Dark circles under eyes [None]
  - Sensation of heaviness [None]
  - Torticollis [None]
  - Myalgia [None]
  - Diarrhoea [None]
  - Headache [None]
